FAERS Safety Report 19669642 (Version 1)
Quarter: 2021Q3

REPORT INFORMATION
  Report Type: Spontaneous
  Country: CA (occurrence: CA)
  Receive Date: 20210806
  Receipt Date: 20210806
  Transmission Date: 20211014
  Serious: Yes (Other)
  Sender: FDA-Public Use
  Company Number: CA-PFIZER INC-202100951420

PATIENT
  Age: 82 Year
  Sex: Female

DRUGS (10)
  1. ADEMPAS [Concomitant]
     Active Substance: RIOCIGUAT
  2. ASA [Concomitant]
     Active Substance: ASPIRIN
  3. LETROZOLE. [Concomitant]
     Active Substance: LETROZOLE
  4. CITALOPRAM [Concomitant]
     Active Substance: CITALOPRAM HYDROBROMIDE
  5. IBRANCE [Suspect]
     Active Substance: PALBOCICLIB
  6. BISOPROLOL [Concomitant]
     Active Substance: BISOPROLOL
  7. LIXIANA [Concomitant]
     Active Substance: EDOXABAN TOSYLATE
  8. PANTOLOC [Concomitant]
     Active Substance: PANTOPRAZOLE SODIUM
  9. ALDACTONE [Concomitant]
     Active Substance: SPIRONOLACTONE
  10. D?TABS [Concomitant]
     Active Substance: CHOLECALCIFEROL

REACTIONS (3)
  - Interstitial lung disease [Unknown]
  - Lung opacity [Unknown]
  - Respiratory failure [Unknown]
